FAERS Safety Report 7031056-8 (Version None)
Quarter: 2010Q4

REPORT INFORMATION
  Report Type: 
  Country: None (occurrence: None)
  Receive Date: 20101006
  Receipt Date: 20100927
  Transmission Date: 20110411
  Serious: Yes (Other)
  Sender: FDA-Public Use
  Company Number: US-ENDO PHARMACEUTICALS INC.-VANT20100079

PATIENT
  Sex: Male

DRUGS (1)
  1. VANTAS [Suspect]
     Indication: PROSTATE CANCER
     Dosage: 50 MG
     Dates: start: 20060101

REACTIONS (4)
  - BONE DENSITY DECREASED [None]
  - DRUG INEFFECTIVE [None]
  - PERIODONTAL DISEASE [None]
  - PROSTATIC SPECIFIC ANTIGEN INCREASED [None]
